FAERS Safety Report 5382426-5 (Version None)
Quarter: 2007Q2

REPORT INFORMATION
  Report Type: 
  Country: None (occurrence: None)
  Receive Date: 20070629
  Receipt Date: 20060608
  Transmission Date: 20071010
  Serious: Yes (Hospitalization)
  Sender: FDA-Public Use
  Company Number: VISP-PR-0606S-0396

PATIENT
  Age: 54 Year
  Sex: Female

DRUGS (3)
  1. VISIPAQUE [Suspect]
     Indication: CHOLELITHIASIS
     Dosage: 100 ML, SINGLE DOSE,  I.V.
     Route: 042
     Dates: start: 20060605, end: 20060605
  2. PREDNISOLONE [Concomitant]
  3. BENADRYL [Concomitant]

REACTIONS (1)
  - ANAPHYLACTOID REACTION [None]
